FAERS Safety Report 14017575 (Version 2)
Quarter: 2018Q1

REPORT INFORMATION
  Report Type: Spontaneous
  Country: US (occurrence: US)
  Receive Date: 20170927
  Receipt Date: 20180301
  Transmission Date: 20180508
  Serious: Yes (Other)
  Sender: FDA-Public Use
  Company Number: US-DEPOMED, INC.-US-2017DEP001396

PATIENT

DRUGS (11)
  1. TOPAMAX [Suspect]
     Active Substance: TOPIRAMATE
     Indication: FIBROMYALGIA
     Dosage: 100 MG, 1-2 TIMES DAILY
     Route: 048
  2. HYDROCHLOROTHIAZIDE. [Concomitant]
     Active Substance: HYDROCHLOROTHIAZIDE
     Indication: PRODUCT USED FOR UNKNOWN INDICATION
     Dosage: 25 MG, QD
     Route: 048
  3. SENEXON                            /00142208/ [Concomitant]
     Indication: PRODUCT USED FOR UNKNOWN INDICATION
     Dosage: 17.2 MG, QD
     Route: 048
  4. LISINOPRIL. [Concomitant]
     Active Substance: LISINOPRIL
     Indication: PRODUCT USED FOR UNKNOWN INDICATION
     Dosage: 40 MG, QD
     Route: 048
  5. NATURE-THROID [Concomitant]
     Active Substance: THYROID, PORCINE
     Indication: PRODUCT USED FOR UNKNOWN INDICATION
     Dosage: 65 MG, QD
     Route: 048
  6. GRALISE [Suspect]
     Active Substance: GABAPENTIN
     Indication: FIBROMYALGIA
     Dosage: 1800 MG, QD
     Route: 048
     Dates: start: 20160519, end: 201706
  7. GRALISE [Suspect]
     Active Substance: GABAPENTIN
     Indication: NEURALGIA
     Dosage: 1200 MG, QD
     Route: 048
     Dates: start: 201706, end: 20170706
  8. VITAMIN D3 [Concomitant]
     Active Substance: CHOLECALCIFEROL
     Indication: VITAMIN D DEFICIENCY
     Dosage: 2 DF, QD
     Route: 048
  9. NORTRIPTYLINE HCL [Concomitant]
     Active Substance: NORTRIPTYLINE HYDROCHLORIDE
     Indication: PRODUCT USED FOR UNKNOWN INDICATION
     Dosage: 75 MG, QD
     Route: 048
  10. TOPAMAX [Suspect]
     Active Substance: TOPIRAMATE
     Indication: SMALL FIBRE NEUROPATHY
     Dosage: 100 MG, BID
     Route: 048
  11. AMLODIPINE BESYLATE. [Concomitant]
     Active Substance: AMLODIPINE BESYLATE
     Indication: PRODUCT USED FOR UNKNOWN INDICATION
     Dosage: 5 MG, QD
     Route: 048

REACTIONS (12)
  - Dry mouth [Unknown]
  - Drug titration error [Unknown]
  - Product use in unapproved indication [Unknown]
  - Hypoxia [Unknown]
  - Fatigue [Not Recovered/Not Resolved]
  - Weight decreased [Unknown]
  - Sleep apnoea syndrome [Unknown]
  - Dizziness [Unknown]
  - Pyrexia [Unknown]
  - Vertigo [Not Recovered/Not Resolved]
  - Balance disorder [Unknown]
  - Pain [Not Recovered/Not Resolved]

NARRATIVE: CASE EVENT DATE: 20160519
